FAERS Safety Report 4853242-5 (Version None)
Quarter: 2005Q4

REPORT INFORMATION
  Report Type: 
  Country: None (occurrence: None)
  Receive Date: 20051213
  Receipt Date: 20051213
  Transmission Date: 20060501
  Serious: Yes (Other)
  Sender: FDA-Public Use
  Company Number: None

PATIENT
  Sex: Female
  Weight: 68.0396 kg

DRUGS (1)
  1. GABITRIL [Suspect]
     Indication: PAIN
     Dosage: 4 MG Q DAY PO
     Route: 048
     Dates: start: 20050104, end: 20051020

REACTIONS (1)
  - LIVER FUNCTION TEST ABNORMAL [None]
